FAERS Safety Report 18984966 (Version 4)
Quarter: 2021Q2

REPORT INFORMATION
  Report Type: Spontaneous
  Country: US (occurrence: US)
  Receive Date: 20210309
  Receipt Date: 20210415
  Transmission Date: 20210717
  Serious: No
  Sender: FDA-Public Use
  Company Number: US-JNJFOC-20210309909

PATIENT
  Age: 68 Year
  Sex: Female
  Weight: 80.36 kg

DRUGS (2)
  1. SIMPONI [Suspect]
     Active Substance: GOLIMUMAB
     Indication: RHEUMATOID ARTHRITIS
     Dosage: 50.00 MG / 0.50 ML
     Route: 058
  2. SIMPONI [Suspect]
     Active Substance: GOLIMUMAB
     Indication: ACCIDENTAL EXPOSURE TO PRODUCT

REACTIONS (6)
  - Accidental exposure to product [Unknown]
  - Device malfunction [Unknown]
  - Injection site haemorrhage [Unknown]
  - Syringe issue [Unknown]
  - Product dose omission issue [Unknown]
  - Device delivery system issue [Unknown]
